FAERS Safety Report 7720877-1 (Version None)
Quarter: 2011Q3

REPORT INFORMATION
  Report Type: 
  Country: None (occurrence: None)
  Receive Date: 20110831
  Receipt Date: 20110822
  Transmission Date: 20111222
  Serious: Yes (Life-Threatening, Hospitalization)
  Sender: FDA-Public Use
  Company Number: CH-US-EMD SERONO, INC.-7027021

PATIENT
  Sex: Female
  Weight: 61 kg

DRUGS (3)
  1. REBIF [Suspect]
     Route: 058
  2. REBIF [Suspect]
     Indication: PRODUCT USED FOR UNKNOWN INDICATION
     Route: 058
     Dates: start: 20100910
  3. IBRUPROFEN [Concomitant]

REACTIONS (5)
  - CHOLANGITIS [None]
  - ERYTHEMA [None]
  - PANCREATITIS [None]
  - ARTHRITIS [None]
  - CHOLELITHIASIS [None]
